FAERS Safety Report 9820787 (Version 1)
Quarter: 2014Q1

REPORT INFORMATION
  Report Type: Spontaneous
  Country: US (occurrence: US)
  Receive Date: 20140116
  Receipt Date: 20140116
  Transmission Date: 20141002
  Serious: No
  Sender: FDA-Public Use
  Company Number: US-PFIZER INC-2014012418

PATIENT
  Age: 44 Year
  Sex: Male
  Weight: 79.37 kg

DRUGS (1)
  1. CHANTIX [Suspect]
     Indication: SMOKING CESSATION THERAPY
     Dosage: UNK
     Dates: start: 20140107

REACTIONS (2)
  - Dysphagia [Unknown]
  - Oropharyngeal pain [Unknown]
